FAERS Safety Report 8244832-0 (Version None)
Quarter: 2012Q1

REPORT INFORMATION
  Report Type: 
  Country: None (occurrence: None)
  Receive Date: 20120329
  Receipt Date: 20110531
  Transmission Date: 20120608
  Serious: No
  Sender: FDA-Public Use
  Company Number: US-MYLANLABS-2011S1011511

PATIENT
  Age: 61 Year
  Sex: Female
  Weight: 81.65 kg

DRUGS (3)
  1. DILAUDID [Concomitant]
     Indication: BACK PAIN
     Route: 048
     Dates: start: 20100101
  2. DIOVAN [Concomitant]
     Indication: BLOOD PRESSURE INCREASED
     Route: 048
     Dates: start: 20010101, end: 20110501
  3. FENTANYL-100 [Suspect]
     Indication: BACK PAIN
     Dosage: CHANGED Q 72 HOURS.
     Route: 062
     Dates: start: 20110301

REACTIONS (4)
  - VISION BLURRED [None]
  - HYPOTENSION [None]
  - DIZZINESS [None]
  - HYPERSOMNIA [None]
